FAERS Safety Report 4958406-8 (Version None)
Quarter: 2006Q1

REPORT INFORMATION
  Report Type: 
  Country: None (occurrence: None)
  Receive Date: 20060201
  Receipt Date: 20051028
  Transmission Date: 20060701
  Serious: No
  Sender: FDA-Public Use
  Company Number: 2005PV003973

PATIENT
  Age: 66 Year
  Sex: Male
  Weight: 133.8111 kg

DRUGS (4)
  1. BYETTA [Suspect]
     Indication: DIABETES MELLITUS NON-INSULIN-DEPENDENT
     Dosage: 5 MCG; BID; SC
     Route: 058
     Dates: start: 20051028
  2. AMARYL [Concomitant]
  3. RESTORIL [Concomitant]
  4. LUPRON [Concomitant]

REACTIONS (5)
  - CHILLS [None]
  - FEELING COLD [None]
  - HYPERHIDROSIS [None]
  - NAUSEA [None]
  - VOMITING [None]
